FAERS Safety Report 5261645-2 (Version None)
Quarter: 2007Q1

REPORT INFORMATION
  Report Type: 
  Country: None (occurrence: None)
  Receive Date: 20070308
  Receipt Date: 20070223
  Transmission Date: 20070707
  Serious: Yes (Hospitalization)
  Sender: FDA-Public Use
  Company Number: SU-2007-005947

PATIENT
  Sex: Female

DRUGS (3)
  1. BENICAR [Suspect]
     Indication: SMOKING CESSATION THERAPY
     Dosage: MG PO
     Route: 048
  2. CHANTIX [Suspect]
     Indication: SMOKING CESSATION THERAPY
     Dosage: MG PO
     Route: 048
  3. WELLBUTRIN [Suspect]
     Indication: SMOKING CESSATION THERAPY
     Dosage: MG PO
     Route: 048

REACTIONS (6)
  - BLOOD PRESSURE ORTHOSTATIC ABNORMAL [None]
  - HYPOVOLAEMIA [None]
  - INCORRECT DOSE ADMINISTERED [None]
  - NAUSEA [None]
  - SYNCOPE [None]
  - WEIGHT DECREASED [None]
